FAERS Safety Report 14615413 (Version 5)
Quarter: 2018Q3

REPORT INFORMATION
  Report Type: Report from Study
  Country: None (occurrence: US)
  Receive Date: 20180308
  Receipt Date: 20180824
  Transmission Date: 20181010
  Serious: Yes (Hospitalization)
  Sender: FDA-Public Use
  Company Number: US-ABBVIE-18K-163-2279082-00

PATIENT
  Age: 51 Year
  Sex: Male

DRUGS (2)
  1. HUMIRA [Suspect]
     Active Substance: ADALIMUMAB
     Indication: PSORIASIS
     Route: 058
     Dates: start: 20171128, end: 20180220
  2. HUMIRA [Suspect]
     Active Substance: ADALIMUMAB
     Route: 058
     Dates: start: 201803

REACTIONS (8)
  - Needle issue [Unknown]
  - Pruritus [Recovering/Resolving]
  - Influenza [Recovering/Resolving]
  - Incorrect dose administered [Unknown]
  - Cellulitis [Recovering/Resolving]
  - Rash [Recovering/Resolving]
  - Injection site pain [Unknown]
  - Limb mass [Recovering/Resolving]

NARRATIVE: CASE EVENT DATE: 2018
